FAERS Safety Report 17051386 (Version 1)
Quarter: 2019Q4

REPORT INFORMATION
  Report Type: Other
  Country: FR (occurrence: FR)
  Receive Date: 20191120
  Receipt Date: 20191120
  Transmission Date: 20200122
  Serious: Yes (Other)
  Sender: FDA-Public Use
  Company Number: FR-CELLTRION INC.-2018FR023940

PATIENT

DRUGS (2)
  1. BENDAMUSTINE ACCORD [Suspect]
     Active Substance: BENDAMUSTINE
     Indication: MARGINAL ZONE LYMPHOMA
     Dosage: 360 MG, CYCLIC
     Route: 042
     Dates: start: 201802, end: 20180725
  2. TRUXIMA [Suspect]
     Active Substance: RITUXIMAB-ABBS
     Indication: MARGINAL ZONE LYMPHOMA
     Dosage: 750 MG, CYCLIC
     Route: 042
     Dates: start: 201802, end: 20180724

REACTIONS (4)
  - Mouth ulceration [Recovering/Resolving]
  - Balanoposthitis [Recovering/Resolving]
  - Off label use [Unknown]
  - Oesophagitis [Recovering/Resolving]

NARRATIVE: CASE EVENT DATE: 201807
